FAERS Safety Report 20540601 (Version 1)
Quarter: 2022Q1

REPORT INFORMATION
  Report Type: Spontaneous
  Country: US (occurrence: US)
  Receive Date: 20220302
  Receipt Date: 20220302
  Transmission Date: 20220423
  Serious: Yes (Other)
  Sender: FDA-Public Use
  Company Number: US-CLARIONBRANDS-2022-US-003323

PATIENT
  Age: 49 Year
  Sex: Female
  Weight: 76.2 kg

DRUGS (2)
  1. ABSORBINE JR PLUS ULTRA STRENGTH PAIN [Suspect]
     Active Substance: MENTHOL
     Indication: Analgesic therapy
     Dosage: APPLIED TO LOW BACK X 1.5 HOURS
     Route: 061
     Dates: start: 20220203, end: 20220203
  2. HYZAAR [Concomitant]
     Active Substance: HYDROCHLOROTHIAZIDE\LOSARTAN POTASSIUM

REACTIONS (11)
  - Application site pain [Recovered/Resolved]
  - Application site pruritus [Recovered/Resolved]
  - Insomnia [Recovered/Resolved]
  - Hyperaesthesia [Recovering/Resolving]
  - Application site vesicles [Recovered/Resolved]
  - Second degree chemical burn of skin [Recovered/Resolved]
  - Hypersensitivity [Recovered/Resolved]
  - Application site erythema [Recovering/Resolving]
  - Application site exfoliation [Recovered/Resolved]
  - Intentional product misuse [Recovered/Resolved]
  - Expired product administered [Recovered/Resolved]

NARRATIVE: CASE EVENT DATE: 20220203
